FAERS Safety Report 21707799 (Version 1)
Quarter: 2022Q4

REPORT INFORMATION
  Report Type: Spontaneous
  Country: IN (occurrence: IN)
  Receive Date: 20221209
  Receipt Date: 20221209
  Transmission Date: 20230113
  Serious: Yes (Other)
  Sender: FDA-Public Use
  Company Number: IN-MYLANLABS-2022M1137799

PATIENT
  Age: 33 Year
  Sex: Male

DRUGS (3)
  1. CYTARABINE [Suspect]
     Active Substance: CYTARABINE
     Indication: Acute promyelocytic leukaemia
     Dosage: 100 MILLIGRAM/SQ. METER, INFUSION (CONTINUOUS INFUSION DAYS 1-7)
     Route: 042
  2. CYTARABINE [Suspect]
     Active Substance: CYTARABINE
     Dosage: RECEIVED HIGH DOSE CYTARABINE AS RE-INDUCTION
     Route: 042
  3. DAUNORUBICIN [Suspect]
     Active Substance: DAUNORUBICIN
     Indication: Acute promyelocytic leukaemia
     Dosage: 60 MILLIGRAM/SQ. METER (ON DAYS 1-3)
     Route: 065

REACTIONS (1)
  - Drug ineffective [Unknown]
